FAERS Safety Report 24136673 (Version 3)
Quarter: 2024Q3

REPORT INFORMATION
  Report Type: Spontaneous
  Country: US (occurrence: US)
  Receive Date: 20240725
  Receipt Date: 20240923
  Transmission Date: 20241016
  Serious: Yes (Other)
  Sender: BAXTER
  Company Number: US-BAXTER-2024BAX021848

PATIENT
  Age: 0 Year
  Sex: Male

DRUGS (2)
  1. DEXTROSE [Suspect]
     Active Substance: DEXTROSE\DEXTROSE MONOHYDRATE
     Indication: Hypoglycaemia
     Dosage: (MANUFACTURING DATE: 23-FEB-2024), UNSPECIFIED DOSE AND FREQUENCY
     Route: 042
     Dates: start: 20240710, end: 20240715
  2. DEXTROSE [Suspect]
     Active Substance: DEXTROSE\DEXTROSE MONOHYDRATE
     Indication: Blood glucose increased
     Dosage: UNK
     Route: 042
     Dates: start: 20240715, end: 20240715

REACTIONS (3)
  - Blood glucose increased [Recovered/Resolved]
  - Product formulation issue [Unknown]
  - Hypoglycaemia [Recovered/Resolved]

NARRATIVE: CASE EVENT DATE: 20240715
